FAERS Safety Report 9385893 (Version 1)
Quarter: 2013Q3

REPORT INFORMATION
  Report Type: Spontaneous
  Country: ES (occurrence: ES)
  Receive Date: 20130705
  Receipt Date: 20130705
  Transmission Date: 20140515
  Serious: Yes (Hospitalization)
  Sender: FDA-Public Use
  Company Number: PHHY2013ES070261

PATIENT
  Age: 72 Year
  Sex: Male

DRUGS (5)
  1. CARBAMAZEPINE [Suspect]
     Dosage: 1000 MG, DAILY
  2. VALPROIC ACID [Suspect]
     Dosage: 1300 MG, DAILY
  3. LORAZEPAM [Suspect]
     Indication: INSOMNIA
     Dosage: 1 MG, DAILY
  4. PIMOZIDE [Suspect]
     Dosage: 8 MG, DAILY
     Route: 048
  5. PIMOZIDE [Suspect]
     Dosage: UNK UKN, UNK (DOSE REDUCED)
     Route: 048

REACTIONS (2)
  - Delusion [Recovered/Resolved]
  - Agitation [Recovered/Resolved]
